FAERS Safety Report 10905671 (Version 1)
Quarter: 2015Q1

REPORT INFORMATION
  Report Type: Spontaneous
  Country: US (occurrence: None)
  Receive Date: 20150309
  Receipt Date: 20150309
  Transmission Date: 20150721
  Serious: Yes (Other)
  Sender: FDA-Public Use
  Company Number: None

PATIENT
  Age: 72 Year
  Sex: Female
  Weight: 64.41 kg

DRUGS (4)
  1. OMEGA-3 ACIDS [Concomitant]
     Active Substance: OMEGA-3 FATTY ACIDS
  2. TOTAL CLEANSE DAILY FIBER SOLARAY [Suspect]
     Active Substance: DIETARY SUPPLEMENT
     Indication: CONSTIPATION
     Dosage: 2 PILLS
     Route: 048
     Dates: start: 20150302, end: 20150302
  3. RED YEAST RICE [Concomitant]
     Active Substance: DIETARY SUPPLEMENT
  4. ALEVE [Concomitant]
     Active Substance: NAPROXEN SODIUM

REACTIONS (3)
  - Dizziness [None]
  - Nausea [None]
  - Fear [None]

NARRATIVE: CASE EVENT DATE: 20150303
